FAERS Safety Report 16571544 (Version 6)
Quarter: 2019Q3

REPORT INFORMATION
  Report Type: Spontaneous
  Country: AR (occurrence: AR)
  Receive Date: 20190715
  Receipt Date: 20190903
  Transmission Date: 20191004
  Serious: Yes (Hospitalization, Other)
  Sender: FDA-Public Use
  Company Number: AR-MYLANLABS-2019M1065862

PATIENT
  Age: 54 Year
  Sex: Female

DRUGS (2)
  1. LAPENAX [Suspect]
     Active Substance: CLOZAPINE
     Indication: PRODUCT USED FOR UNKNOWN INDICATION
     Dosage: 300 MILLIGRAM, QD
     Dates: start: 20020127
  2. LAPENAX [Suspect]
     Active Substance: CLOZAPINE
     Dosage: 200 MILLIGRAM, QD

REACTIONS (8)
  - Red blood cell count decreased [Unknown]
  - Monocyte count increased [Unknown]
  - Breast cancer [Unknown]
  - Agranulocytosis [Not Recovered/Not Resolved]
  - Blood glucose increased [Unknown]
  - Haemoglobin decreased [Unknown]
  - Leukocytosis [Recovered/Resolved]
  - Lymphocyte count increased [Unknown]

NARRATIVE: CASE EVENT DATE: 201904
